FAERS Safety Report 16340557 (Version 2)
Quarter: 2021Q2

REPORT INFORMATION
  Report Type: Report from Study
  Country: IT (occurrence: IT)
  Receive Date: 20190522
  Receipt Date: 20210427
  Transmission Date: 20210716
  Serious: Yes (Other)
  Sender: FDA-Public Use
  Company Number: IT-AUROBINDO-AUR-APL-2017-45089

PATIENT
  Age: 62 Year
  Sex: Male

DRUGS (1)
  1. SEVELAMER [Suspect]
     Active Substance: SEVELAMER
     Indication: END STAGE RENAL DISEASE
     Dosage: 3.2 GRAM, ONCE A DAY
     Route: 065

REACTIONS (2)
  - Crystal deposit intestine [Not Recovered/Not Resolved]
  - Colitis [Not Recovered/Not Resolved]
